FAERS Safety Report 16816081 (Version 1)
Quarter: 2019Q3

REPORT INFORMATION
  Report Type: Spontaneous
  Country: DE (occurrence: DE)
  Receive Date: 20190917
  Receipt Date: 20190917
  Transmission Date: 20191005
  Serious: Yes (Life-Threatening, Hospitalization, Other)
  Sender: FDA-Public Use
  Company Number: DE-STRIDES ARCOLAB LIMITED-2019SP008738

PATIENT
  Age: 43 Year
  Sex: Female

DRUGS (6)
  1. TIOTROPIUM [Concomitant]
     Active Substance: TIOTROPIUM
     Indication: ASTHMA
     Dosage: 18 ?G BID (12 HOURS)
  2. BUDESONIDE. [Concomitant]
     Active Substance: BUDESONIDE
     Indication: ASTHMA
     Dosage: 200 ?G, BID
  3. PREDNISOLONE. [Suspect]
     Active Substance: PREDNISOLONE
     Indication: STATUS ASTHMATICUS
     Dosage: 50 MG, QID
     Route: 065
  4. QUETIAPINE. [Suspect]
     Active Substance: QUETIAPINE
     Indication: PRODUCT USED FOR UNKNOWN INDICATION
     Dosage: UNK
     Route: 065
  5. BUDESONIDE W/FORMOTEROL [Concomitant]
     Active Substance: BUDESONIDE\FORMOTEROL
     Indication: ASTHMA
     Dosage: FIXED-DOSE COMBINATION 320/9 ?G TWICE DAILY
  6. IBUPROFEN. [Suspect]
     Active Substance: IBUPROFEN
     Indication: PRODUCT USED FOR UNKNOWN INDICATION
     Dosage: UNK
     Route: 065

REACTIONS (9)
  - Hypercapnia [Recovered/Resolved]
  - Toxicity to various agents [Recovered/Resolved]
  - Lung infiltration [Recovered/Resolved]
  - Asthma [Recovered/Resolved]
  - Pyrexia [Recovered/Resolved]
  - Status asthmaticus [Recovered/Resolved]
  - Therapy partial responder [Unknown]
  - Respiratory acidosis [Recovered/Resolved]
  - Suicide attempt [Unknown]
